FAERS Safety Report 6251037-1 (Version None)
Quarter: 2009Q2

REPORT INFORMATION
  Report Type: 
  Country: None (occurrence: None)
  Receive Date: 20090630
  Receipt Date: 20090513
  Transmission Date: 20091009
  Serious: No
  Sender: FDA-Public Use
  Company Number: US-ABBOTT-08P-163-0494567-00

PATIENT
  Sex: Male
  Weight: 119.86 kg

DRUGS (16)
  1. ZEMPLAR [Suspect]
     Indication: HYPERPARATHYROIDISM
     Dates: start: 20080804
  2. KLOR-CON [Concomitant]
     Indication: DRUG USE FOR UNKNOWN INDICATION
  3. CARBAMINIDE [Concomitant]
     Indication: DRUG USE FOR UNKNOWN INDICATION
  4. ALLOPURINOL [Concomitant]
     Indication: GOUT
  5. ASPIRIN [Concomitant]
     Indication: CARDIOVASCULAR EVENT PROPHYLAXIS
  6. LASIX [Concomitant]
     Indication: POLYURIA
  7. VYTORIN [Concomitant]
     Indication: DRUG USE FOR UNKNOWN INDICATION
     Dosage: NOT REPORTED
  8. PREVACID [Concomitant]
     Indication: GASTROOESOPHAGEAL REFLUX DISEASE
  9. K-CLOR [Concomitant]
     Indication: POLYURIA
  10. K-CLOR [Concomitant]
     Indication: ELECTROLYTE SUBSTITUTION THERAPY
  11. NORVASC [Concomitant]
     Indication: HYPERTENSION
  12. COLBENEMID [Concomitant]
     Indication: DRUG USE FOR UNKNOWN INDICATION
  13. COLCHICINE [Concomitant]
     Indication: GOUT
  14. METOPROLOL SUCCINATE [Concomitant]
     Indication: CARDIAC DISORDER
  15. ISORBIDE [Concomitant]
     Indication: CARDIAC DISORDER
  16. CENTRUM SILVER OTC MULTIVITAMIN [Concomitant]
     Indication: DRUG USE FOR UNKNOWN INDICATION

REACTIONS (5)
  - DRY MOUTH [None]
  - MYALGIA [None]
  - PAIN IN EXTREMITY [None]
  - SALIVA ALTERED [None]
  - TENDONITIS [None]
